FAERS Safety Report 4943406-4 (Version None)
Quarter: 2006Q1

REPORT INFORMATION
  Report Type: 
  Country: None (occurrence: None)
  Receive Date: 20060314
  Receipt Date: 20060310
  Transmission Date: 20060701
  Serious: Yes (Other)
  Sender: FDA-Public Use
  Company Number: JP-AVENTIS-200610772JP

PATIENT

DRUGS (1)
  1. ALLEGRA [Suspect]
     Indication: RHINITIS SEASONAL
     Route: 048

REACTIONS (1)
  - HAEMANGIOMA [None]
